FAERS Safety Report 4620459-4 (Version None)
Quarter: 2005Q1

REPORT INFORMATION
  Report Type: 
  Country: None (occurrence: None)
  Receive Date: 20050324
  Receipt Date: 20050308
  Transmission Date: 20050727
  Serious: Yes (Other)
  Sender: FDA-Public Use
  Company Number: 10450

PATIENT
  Age: 66 Year
  Sex: Male
  Weight: 73 kg

DRUGS (1)
  1. CYTARABINE [Suspect]

REACTIONS (2)
  - DRUG TOXICITY [None]
  - NERVOUS SYSTEM DISORDER [None]
